FAERS Safety Report 5679602-0 (Version None)
Quarter: 2008Q1

REPORT INFORMATION
  Report Type: 
  Country: None (occurrence: None)
  Receive Date: 20080325
  Receipt Date: 20080313
  Transmission Date: 20080703
  Serious: Yes (Other)
  Sender: FDA-Public Use
  Company Number: JP-PFIZER INC-2008026235

PATIENT
  Sex: Male
  Weight: 51 kg

DRUGS (30)
  1. IRINOTECAN HCL [Suspect]
     Indication: NON-SMALL CELL LUNG CANCER
     Dosage: DAILY DOSE:148MG
     Route: 042
     Dates: start: 20050316, end: 20050316
  2. IRINOTECAN HCL [Suspect]
     Dosage: DAILY DOSE:118.4MG
     Route: 042
     Dates: start: 20050323, end: 20050323
  3. BROCIN [Concomitant]
     Indication: COUGH
     Dosage: DAILY DOSE:10ML
     Route: 048
     Dates: start: 20050316, end: 20050330
  4. MEDICON [Concomitant]
     Indication: COUGH
     Dosage: DAILY DOSE:60MG
     Route: 048
     Dates: start: 20050316, end: 20050330
  5. APRICOT KERNEL WATER [Concomitant]
     Indication: COUGH
     Dosage: DAILY DOSE:3ML
     Route: 048
     Dates: start: 20050316, end: 20050330
  6. WATER [Concomitant]
     Indication: COUGH
     Dosage: DAILY DOSE:6ML
     Route: 048
     Dates: start: 20050316, end: 20050330
  7. KYTRIL [Concomitant]
     Indication: NAUSEA
     Dosage: DAILY DOSE:3MG
     Route: 042
     Dates: start: 20050316, end: 20050324
  8. DECADRON [Concomitant]
     Indication: NAUSEA
     Dosage: DAILY DOSE:8MG
     Route: 042
     Dates: start: 20050316, end: 20050323
  9. BUSCOPAN [Concomitant]
     Indication: DIARRHOEA
     Dosage: DAILY DOSE:20MG
     Route: 042
     Dates: start: 20050316, end: 20050316
  10. SODIUM CHLORIDE [Concomitant]
     Indication: FLUID REPLACEMENT
     Dosage: DAILY DOSE:120ML
     Route: 042
     Dates: start: 20050316, end: 20050316
  11. SODIUM CHLORIDE [Concomitant]
     Dosage: DAILY DOSE:100ML
     Route: 042
     Dates: start: 20050317, end: 20050406
  12. DEXTROSE [Concomitant]
     Indication: FLUID REPLACEMENT
     Dosage: DAILY DOSE:250ML
     Route: 042
     Dates: start: 20050316, end: 20050523
  13. SOLITA-T3 INJECTION [Concomitant]
     Indication: FLUID REPLACEMENT
     Dosage: DAILY DOSE:500ML
     Route: 042
     Dates: start: 20050322, end: 20050401
  14. PRIMPERAN INJ [Concomitant]
     Indication: NAUSEA
     Dosage: DAILY DOSE:10MG
     Route: 042
     Dates: start: 20050322, end: 20050322
  15. PRIMPERAN INJ [Concomitant]
     Dosage: DAILY DOSE:15MG
     Route: 048
     Dates: start: 20050324, end: 20050325
  16. LOPEMIN [Concomitant]
     Indication: DIARRHOEA
     Dosage: DAILY DOSE:1MG
     Route: 048
     Dates: start: 20050324, end: 20050324
  17. LACTEC G [Concomitant]
     Indication: FLUID REPLACEMENT
     Dosage: DAILY DOSE:500ML
     Route: 042
     Dates: start: 20050324, end: 20050401
  18. CATLEP [Concomitant]
     Indication: PERIARTHRITIS
  19. NAUZELIN [Concomitant]
     Indication: NAUSEA
     Dosage: DAILY DOSE:30MG
     Route: 048
     Dates: start: 20050328, end: 20050330
  20. WYPAX [Concomitant]
     Indication: ANXIETY
     Dosage: DAILY DOSE:1MG
     Route: 048
     Dates: start: 20050328, end: 20050330
  21. LAC B [Concomitant]
     Indication: PYREXIA
     Dosage: DAILY DOSE:3GRAM
     Route: 048
     Dates: start: 20050331, end: 20050331
  22. ROPION [Concomitant]
     Indication: PYREXIA
     Dosage: DAILY DOSE:50MG
     Route: 042
     Dates: start: 20050331, end: 20050401
  23. CALONAL [Concomitant]
     Indication: PYREXIA
     Dosage: DAILY DOSE:200MG
     Route: 048
     Dates: start: 20050331, end: 20050331
  24. VOLTAREN [Concomitant]
     Indication: PYREXIA
     Dosage: DAILY DOSE:25MG
     Route: 054
     Dates: start: 20050331, end: 20050331
  25. LACTEC [Concomitant]
     Indication: PYREXIA
     Dosage: DAILY DOSE:500ML
     Route: 042
     Dates: start: 20050331, end: 20050331
  26. MAXIPIME [Concomitant]
     Indication: PYREXIA
     Dosage: DAILY DOSE:2GRAM
     Route: 042
     Dates: start: 20050331, end: 20050406
  27. AMINOFLUID [Concomitant]
     Indication: FLUID REPLACEMENT
     Dosage: DAILY DOSE:500ML
     Route: 042
     Dates: start: 20050401, end: 20050401
  28. BIOFERMIN R [Concomitant]
     Indication: DIARRHOEA
     Dosage: DAILY DOSE:3GRAM
     Route: 048
  29. FULCALIQ [Concomitant]
     Indication: FLUID REPLACEMENT
     Dosage: DAILY DOSE:1806ML
     Route: 042
     Dates: start: 20050402, end: 20050402
  30. ALL OTHER THERAPEUTIC PRODUCTS [Concomitant]
     Indication: COUGH
     Dosage: DAILY DOSE:11ML
     Route: 048
     Dates: start: 20050316, end: 20050330

REACTIONS (2)
  - ENTERITIS [None]
  - HAEMOGLOBIN DECREASED [None]
